FAERS Safety Report 5075204-8 (Version None)
Quarter: 2006Q3

REPORT INFORMATION
  Report Type: 
  Country: None (occurrence: None)
  Receive Date: 20060714
  Receipt Date: 20060418
  Transmission Date: 20061208
  Serious: No
  Sender: FDA-Public Use
  Company Number: 2006SP001736

PATIENT
  Age: 43 Year
  Sex: Male
  Weight: 81.6475 kg

DRUGS (3)
  1. LUNESTA [Suspect]
     Indication: INSOMNIA
     Dosage: 1X; ORAL
     Route: 048
     Dates: start: 20060301, end: 20060301
  2. ANTIDEPRESSANTS [Concomitant]
  3. PRAVACHOL [Concomitant]

REACTIONS (1)
  - ABDOMINAL PAIN UPPER [None]
